FAERS Safety Report 7442592-4 (Version None)
Quarter: 2011Q2

REPORT INFORMATION
  Report Type: 
  Country: None (occurrence: None)
  Receive Date: 20110428
  Receipt Date: 20110418
  Transmission Date: 20111010
  Serious: Yes (Other)
  Sender: FDA-Public Use
  Company Number: PHHY2011BE33431

PATIENT
  Sex: Female

DRUGS (5)
  1. MIACALCIN [Suspect]
     Indication: COMPLEX REGIONAL PAIN SYNDROME
     Dosage: 50 IU, UNK
     Route: 058
     Dates: start: 20110320, end: 20110418
  2. MIACALCIN [Suspect]
     Dosage: 100 IU, UNK
     Route: 058
  3. MOTILIUM [Concomitant]
     Indication: NAUSEA
     Dosage: UNK
     Dates: start: 20110320, end: 20110418
  4. OMEPRAZOLE [Concomitant]
     Indication: GASTRIC DISORDER
     Dosage: 20 MG, UNK
  5. ORTHO EVRA [Concomitant]
     Dosage: 0.02/0.15 MG/ 24 HR
     Route: 062

REACTIONS (6)
  - METRORRHAGIA [None]
  - SYNCOPE [None]
  - CHILLS [None]
  - MUSCULAR WEAKNESS [None]
  - ARTHRALGIA [None]
  - SKIN LESION [None]
